FAERS Safety Report 9988280 (Version 1)
Quarter: 2014Q1

REPORT INFORMATION
  Report Type: Spontaneous
  Country: FR (occurrence: FR)
  Receive Date: 20140310
  Receipt Date: 20140310
  Transmission Date: 20141002
  Serious: Yes (Other)
  Sender: FDA-Public Use
  Company Number: FR-ROCHE-1356231

PATIENT
  Age: 73 Year
  Sex: Female

DRUGS (2)
  1. HERCEPTIN [Suspect]
     Indication: HER-2 POSITIVE BREAST CANCER
     Route: 042
     Dates: start: 20131011
  2. THYROZOL [Suspect]
     Indication: HYPERTHYROIDISM
     Route: 048
     Dates: start: 2012, end: 20140121

REACTIONS (1)
  - Hepatitis cholestatic [Recovered/Resolved]
